FAERS Safety Report 15867122 (Version 1)
Quarter: 2019Q1

REPORT INFORMATION
  Report Type: Spontaneous
  Country: US (occurrence: US)
  Receive Date: 20190125
  Receipt Date: 20190125
  Transmission Date: 20190417
  Serious: Yes (Hospitalization, Other)
  Sender: FDA-Public Use
  Company Number: US-JNJFOC-20190128761

PATIENT
  Age: 71 Year
  Sex: Male

DRUGS (1)
  1. INVOKANA [Suspect]
     Active Substance: CANAGLIFLOZIN
     Indication: TYPE 2 DIABETES MELLITUS
     Route: 048
     Dates: start: 20140616

REACTIONS (6)
  - Cellulitis [Unknown]
  - Skin ulcer [Not Recovered/Not Resolved]
  - Abscess limb [Unknown]
  - Toe amputation [Unknown]
  - Wound [Unknown]
  - Osteomyelitis chronic [Unknown]

NARRATIVE: CASE EVENT DATE: 201704
